FAERS Safety Report 8491198 (Version 2)
Quarter: 2013Q1

REPORT INFORMATION
  Report Type: Spontaneous
  Country: US (occurrence: US)
  Receive Date: 20120403
  Receipt Date: 20130221
  Transmission Date: 20140127
  Serious: Yes (Other)
  Sender: FDA-Public Use
  Company Number: US-PFIZER INC-2012080982

PATIENT
  Age: 69 Year
  Sex: Female
  Weight: 58.05 kg

DRUGS (8)
  1. PREMARIN [Suspect]
     Indication: HORMONE REPLACEMENT THERAPY
     Dosage: 0.625 MG, 1 TABLET DAILY
     Route: 048
     Dates: start: 19741204
  2. PREMARIN [Suspect]
     Indication: IRRITABILITY
  3. PREMARIN [Suspect]
     Indication: OSTEOPOROSIS
  4. PREMARIN [Suspect]
     Indication: OVARIAN DISORDER
  5. PREMARIN [Suspect]
     Indication: MENOPAUSE
  6. ZOLOFT [Concomitant]
     Dosage: 50 MG, UNK
  7. SIMVASTATIN [Concomitant]
     Dosage: 5 MG, UNK
  8. NEXIUM [Concomitant]
     Indication: GASTROOESOPHAGEAL REFLUX DISEASE
     Dosage: 40 MG, 2X/DAY

REACTIONS (2)
  - Osteoarthritis [Not Recovered/Not Resolved]
  - Blood cholesterol increased [Recovering/Resolving]
